FAERS Safety Report 14545018 (Version 1)
Quarter: 2018Q1

REPORT INFORMATION
  Report Type: Spontaneous
  Country: US (occurrence: US)
  Receive Date: 20180216
  Receipt Date: 20180216
  Transmission Date: 20180509
  Serious: No
  Sender: FDA-Public Use
  Company Number: None

PATIENT
  Sex: Male

DRUGS (1)
  1. SEROQUEL [Suspect]
     Active Substance: QUETIAPINE FUMARATE

REACTIONS (6)
  - Product substitution issue [None]
  - Intentional self-injury [None]
  - Aggression [None]
  - Bite [None]
  - Haemorrhage [None]
  - Injury [None]
